FAERS Safety Report 7647638-6 (Version None)
Quarter: 2011Q3

REPORT INFORMATION
  Report Type: 
  Country: None (occurrence: None)
  Receive Date: 20110801
  Receipt Date: 20110801
  Transmission Date: 20111222
  Serious: Yes (Other)
  Sender: FDA-Public Use
  Company Number: None

PATIENT
  Sex: Male
  Weight: 32.8 kg

DRUGS (1)
  1. GABLOFEN [Suspect]
     Indication: MUSCLE SPASTICITY
     Dosage: 760.1 MCQ/DAY
     Route: 039
     Dates: start: 20110216, end: 20110513

REACTIONS (2)
  - CONSTIPATION [None]
  - MIGRAINE [None]
